FAERS Safety Report 8119157-4 (Version None)
Quarter: 2012Q1

REPORT INFORMATION
  Report Type: 
  Country: None (occurrence: None)
  Receive Date: 20120207
  Receipt Date: 20120207
  Transmission Date: 20120608
  Serious: No
  Sender: FDA-Public Use
  Company Number: None

PATIENT
  Age: 37 Year
  Sex: Male
  Weight: 64.41 kg

DRUGS (1)
  1. PROPECIA [Suspect]
     Indication: ALOPECIA
     Dosage: 1.2MG
     Route: 048
     Dates: start: 20110608, end: 20111220

REACTIONS (6)
  - ANXIETY [None]
  - MOOD SWINGS [None]
  - MUSCLE ATROPHY [None]
  - SEXUAL DYSFUNCTION [None]
  - ASTHENIA [None]
  - COLD SWEAT [None]
